FAERS Safety Report 8084536-0 (Version None)
Quarter: 2012Q1

REPORT INFORMATION
  Report Type: 
  Country: None (occurrence: None)
  Receive Date: 20120128
  Receipt Date: 20110331
  Transmission Date: 20120608
  Serious: No
  Sender: FDA-Public Use
  Company Number: US-ABBOTT-11P-163-0716542-00

PATIENT
  Sex: Male

DRUGS (1)
  1. HUMIRA [Suspect]
     Indication: CROHN'S DISEASE
     Dosage: ONE TIME LOADING DOSE
     Route: 058
     Dates: start: 20110324, end: 20110324

REACTIONS (2)
  - VISUAL IMPAIRMENT [None]
  - VISUAL ACUITY REDUCED [None]
